FAERS Safety Report 8882404 (Version 1)
Quarter: 2012Q4

REPORT INFORMATION
  Report Type: Report from Study
  Country: IN (occurrence: IN)
  Receive Date: 20121102
  Receipt Date: 20121102
  Transmission Date: 20130627
  Serious: Yes (Death)
  Sender: FDA-Public Use
  Company Number: PHHO2010IN12284

PATIENT
  Age: 80 Year
  Sex: Male
  Weight: 67 kg

DRUGS (3)
  1. ALISKIREN [Suspect]
     Indication: CARDIAC FAILURE ACUTE
     Route: 048
     Dates: start: 20100720, end: 20100805
  2. CARDACE [Concomitant]
     Indication: CARDIAC FAILURE CONGESTIVE
  3. LANOXIN [Concomitant]
     Indication: CARDIAC FAILURE CONGESTIVE

REACTIONS (3)
  - Cardio-respiratory arrest [Fatal]
  - Left ventricular dysfunction [Fatal]
  - Disease progression [Fatal]
